FAERS Safety Report 4905810-X (Version None)
Quarter: 2006Q1

REPORT INFORMATION
  Report Type: 
  Country: None (occurrence: None)
  Receive Date: 20060208
  Receipt Date: 20051006
  Transmission Date: 20060701
  Serious: Yes (Other)
  Sender: FDA-Public Use
  Company Number: US-MERCK-0510USA05852

PATIENT
  Age: 62 Year
  Sex: Male
  Weight: 100 kg

DRUGS (6)
  1. VIOXX [Suspect]
     Indication: ARTHRITIS
     Route: 048
     Dates: start: 20000101, end: 20040901
  2. VICODIN [Concomitant]
     Route: 065
  3. ANAVAR [Concomitant]
     Route: 065
  4. DIOVAN [Concomitant]
     Route: 065
  5. PRAVACHOL [Concomitant]
     Route: 065
  6. ASPIRIN [Concomitant]
     Route: 065

REACTIONS (9)
  - ARTHROPATHY [None]
  - ASTHENIA [None]
  - CARDIAC FAILURE [None]
  - EYE INJURY [None]
  - FALL [None]
  - MYALGIA [None]
  - MYOCARDIAL INFARCTION [None]
  - ROTATOR CUFF SYNDROME [None]
  - TENDON RUPTURE [None]
